FAERS Safety Report 10935391 (Version 2)
Quarter: 2015Q2

REPORT INFORMATION
  Report Type: Spontaneous
  Country: US (occurrence: US)
  Receive Date: 20150320
  Receipt Date: 20150521
  Transmission Date: 20150821
  Serious: Yes (Hospitalization, Other)
  Sender: FDA-Public Use
  Company Number: US-TEVA-548443USA

PATIENT
  Age: 24 Year
  Sex: Female

DRUGS (2)
  1. PARAGARD T 380A [Suspect]
     Active Substance: COPPER
     Indication: CONTRACEPTION
     Route: 015
     Dates: start: 20150225
  2. DEPO-PROVERA [Suspect]
     Active Substance: MEDROXYPROGESTERONE ACETATE
     Indication: CONTRACEPTION
     Route: 065
     Dates: start: 201412

REACTIONS (7)
  - Abortion spontaneous [Recovered/Resolved]
  - Uterine haemorrhage [Unknown]
  - Muscle spasms [Unknown]
  - Depression [Unknown]
  - Post-traumatic stress disorder [Unknown]
  - Drug administration error [Unknown]
  - Intra-uterine contraceptive device insertion [Unknown]

NARRATIVE: CASE EVENT DATE: 2015
